FAERS Safety Report 9800686 (Version 1)
Quarter: 2014Q1

REPORT INFORMATION
  Report Type: Spontaneous
  Country: US (occurrence: US)
  Receive Date: 20140107
  Receipt Date: 20140107
  Transmission Date: 20141002
  Serious: No
  Sender: FDA-Public Use
  Company Number: US-B.I. PHARMACEUTICALS,INC./RIDGEFIELD-2013-BI-44152BP

PATIENT
  Age: 85 Year
  Sex: Female
  Weight: 64 kg

DRUGS (2)
  1. COMBIVENT [Suspect]
     Indication: PULMONARY FIBROSIS
     Dosage: DOSE PER APPLICATION: 20 MCG / 100 MCG; DAILY DOSE: 80MCG/400MCG
     Route: 055
     Dates: start: 201309
  2. COMBIVENT CFC [Concomitant]
     Dosage: DOSE PER APPLICATION: 18MCG/103MCG;
     Route: 055
     Dates: start: 2010

REACTIONS (3)
  - Cough [Not Recovered/Not Resolved]
  - Overdose [Not Recovered/Not Resolved]
  - Off label use [Not Recovered/Not Resolved]
